FAERS Safety Report 7065709-2 (Version None)
Quarter: 2010Q4

REPORT INFORMATION
  Report Type: 
  Country: None (occurrence: None)
  Receive Date: 20101027
  Receipt Date: 20101013
  Transmission Date: 20110411
  Serious: Yes (Other)
  Sender: FDA-Public Use
  Company Number: PHHY2010US68940

PATIENT

DRUGS (2)
  1. GLEEVEC [Suspect]
     Dosage: UNK
  2. SPRYCEL [Concomitant]

REACTIONS (3)
  - DISEASE PROGRESSION [None]
  - DYSPHAGIA [None]
  - OESOPHAGEAL STENOSIS [None]
